FAERS Safety Report 7444375-8 (Version None)
Quarter: 2011Q2

REPORT INFORMATION
  Report Type: 
  Country: None (occurrence: None)
  Receive Date: 20110427
  Receipt Date: 20110427
  Transmission Date: 20111010
  Serious: Yes (Life-Threatening, Hospitalization)
  Sender: FDA-Public Use
  Company Number: None

PATIENT
  Sex: Female
  Weight: 96 kg

DRUGS (1)
  1. ISOVUE-300 [Suspect]
     Indication: SCAN WITH CONTRAST
     Dosage: 100ML ONCE IV DRIP
     Route: 041
     Dates: start: 20110113, end: 20110113

REACTIONS (3)
  - DYSPNOEA [None]
  - COUGH [None]
  - ANAPHYLACTIC REACTION [None]
